FAERS Safety Report 17814285 (Version 1)
Quarter: 2020Q2

REPORT INFORMATION
  Report Type: Spontaneous
  Country: CA (occurrence: CA)
  Receive Date: 20200521
  Receipt Date: 20200521
  Transmission Date: 20200714
  Serious: Yes (Other)
  Sender: FDA-Public Use
  Company Number: CA-ROCHE-2602574

PATIENT
  Age: 59 Year
  Sex: Female
  Weight: 66 kg

DRUGS (10)
  1. DILANTIN [Concomitant]
     Active Substance: PHENYTOIN
  2. DOMPERIDONE [Concomitant]
     Active Substance: DOMPERIDONE
  3. METHOTREXATE. [Concomitant]
     Active Substance: METHOTREXATE
  4. PRIMIDONE. [Concomitant]
     Active Substance: PRIMIDONE
  5. PANTOPRAZOLE [Concomitant]
     Active Substance: PANTOPRAZOLE
  6. RITUXIMAB. [Suspect]
     Active Substance: RITUXIMAB
     Indication: RHEUMATOID ARTHRITIS
     Route: 042
  7. METHYLPREDNISOLONE SODIUM SUCCINATE. [Suspect]
     Active Substance: METHYLPREDNISOLONE SODIUM SUCCINATE
     Indication: PREMEDICATION
     Route: 042
  8. ACETAMINOPHEN. [Concomitant]
     Active Substance: ACETAMINOPHEN
     Route: 065
  9. DIPHENHYDRAMINE HYDROCHLORIDE. [Concomitant]
     Active Substance: DIPHENHYDRAMINE HYDROCHLORIDE
     Route: 065
  10. FOLIC ACID. [Concomitant]
     Active Substance: FOLIC ACID

REACTIONS (7)
  - Malaise [Unknown]
  - Injection site extravasation [Unknown]
  - Epilepsy [Unknown]
  - Blood pressure increased [Unknown]
  - Bradycardia [Unknown]
  - Hypotension [Unknown]
  - Weight decreased [Unknown]
